FAERS Safety Report 10189982 (Version 2)
Quarter: 2014Q2

REPORT INFORMATION
  Report Type: Spontaneous
  Country: US (occurrence: US)
  Receive Date: 20140522
  Receipt Date: 20140605
  Transmission Date: 20141212
  Serious: Yes (Other)
  Sender: FDA-Public Use
  Company Number: US-AMGEN-USASP2014035774

PATIENT
  Age: 72 Year
  Sex: Female
  Weight: 87.98 kg

DRUGS (2)
  1. PROLIA [Suspect]
     Indication: OSTEOPOROSIS POSTMENOPAUSAL
     Route: 065
  2. DIOVAN [Concomitant]

REACTIONS (2)
  - Hepatitis C [Unknown]
  - Pancytopenia [Unknown]
